FAERS Safety Report 23622970 (Version 2)
Quarter: 2024Q3

REPORT INFORMATION
  Report Type: Spontaneous
  Country: JP (occurrence: JP)
  Receive Date: 20240312
  Receipt Date: 20240716
  Transmission Date: 20241016
  Serious: Yes (Hospitalization, Other)
  Sender: MERCK
  Company Number: JP-MSD-M2024-08875

PATIENT
  Sex: Female

DRUGS (4)
  1. KEYTRUDA [Suspect]
     Active Substance: PEMBROLIZUMAB
     Indication: Cervix carcinoma stage IV
     Dosage: 200 MILLIGRAM, Q3W
     Route: 041
     Dates: start: 20231010, end: 20240206
  2. BEVACIZUMAB [Suspect]
     Active Substance: BEVACIZUMAB
     Indication: Cervix carcinoma stage IV
     Dosage: UNK
     Route: 065
     Dates: start: 20231010, end: 20240206
  3. CARBOPLATIN [Concomitant]
     Active Substance: CARBOPLATIN
     Indication: Cervix carcinoma stage IV
     Dosage: UNK
     Route: 065
     Dates: start: 20231010, end: 20240206
  4. PACLITAXEL [Concomitant]
     Active Substance: PACLITAXEL
     Indication: Cervix carcinoma stage IV
     Dosage: UNK
     Route: 065
     Dates: start: 20231010, end: 20240206

REACTIONS (2)
  - Vesical fistula [Unknown]
  - Uterine fistula [Unknown]

NARRATIVE: CASE EVENT DATE: 20240201
